FAERS Safety Report 18727863 (Version 3)
Quarter: 2022Q3

REPORT INFORMATION
  Report Type: Spontaneous
  Country: US (occurrence: US)
  Receive Date: 20210111
  Receipt Date: 20220713
  Transmission Date: 20221026
  Serious: No
  Sender: FDA-Public Use
  Company Number: US-PFIZER INC-2021014714

PATIENT
  Age: 49 Year
  Sex: Female

DRUGS (2)
  1. XELJANZ XR [Suspect]
     Active Substance: TOFACITINIB CITRATE
     Indication: Rheumatoid arthritis
     Dosage: 11 MG, 1X/DAY
     Route: 048
     Dates: start: 202012
  2. XELJANZ XR [Suspect]
     Active Substance: TOFACITINIB CITRATE
     Indication: Pain
     Dosage: 11 MG, 1X/DAY
     Route: 048
     Dates: start: 202204

REACTIONS (10)
  - Drug ineffective [Unknown]
  - Product dose omission in error [Unknown]
  - Menopausal symptoms [Unknown]
  - Depression [Unknown]
  - Dry skin [Unknown]
  - Weight increased [Unknown]
  - Onychomycosis [Unknown]
  - Alopecia [Unknown]
  - Rash [Unknown]
  - Nail discomfort [Unknown]
